FAERS Safety Report 12215195 (Version 1)
Quarter: 2016Q1

REPORT INFORMATION
  Report Type: Report from Study
  Country: BR (occurrence: BR)
  Receive Date: 20160328
  Receipt Date: 20160328
  Transmission Date: 20160526
  Serious: Yes (Other)
  Sender: FDA-Public Use
  Company Number: BR-EMD SERONO-8074464

PATIENT
  Age: 11 Year
  Sex: Female
  Weight: 42 kg

DRUGS (2)
  1. SAIZEN [Suspect]
     Active Substance: SOMATROPIN
     Indication: GROWTH RETARDATION
     Dosage: DOSE: 2.0 (UNSPECIFIED UNIT)
     Route: 058
     Dates: start: 201305
  2. SAIZEN [Suspect]
     Active Substance: SOMATROPIN
     Route: 058
     Dates: end: 201602

REACTIONS (1)
  - Insulin-like growth factor increased [Unknown]

NARRATIVE: CASE EVENT DATE: 201501
